FAERS Safety Report 22324474 (Version 2)
Quarter: 2023Q2

REPORT INFORMATION
  Report Type: Report from Study
  Country: US (occurrence: US)
  Receive Date: 20230516
  Receipt Date: 20230615
  Transmission Date: 20230721
  Serious: Yes (Hospitalization)
  Sender: FDA-Public Use
  Company Number: US-ASTELLAS-2023US010911

PATIENT
  Sex: Female

DRUGS (2)
  1. GILTERITINIB [Suspect]
     Active Substance: GILTERITINIB
     Indication: Acute myeloid leukaemia
     Dosage: 120 MG, OTHER (DAILY 14 DAYS AND 7 DAYS OFF)
     Route: 048
     Dates: start: 202304
  2. GILTERITINIB [Suspect]
     Active Substance: GILTERITINIB
     Dosage: 120 MG, (DAILY 14 DAYS AND 7 DAYS OFF)
     Route: 048

REACTIONS (2)
  - Full blood count decreased [Unknown]
  - Product use issue [Unknown]
